FAERS Safety Report 14673320 (Version 2)
Quarter: 2018Q2

REPORT INFORMATION
  Report Type: Spontaneous
  Country: US (occurrence: US)
  Receive Date: 20180323
  Receipt Date: 20180430
  Transmission Date: 20180711
  Serious: Yes (Other)
  Sender: FDA-Public Use
  Company Number: US-STRIDES ARCOLAB LIMITED-2018SP002120

PATIENT

DRUGS (1)
  1. VANCOMYCIN [Suspect]
     Active Substance: VANCOMYCIN
     Indication: INFECTION PROPHYLAXIS
     Dosage: INTRACAMERAL, 0.1 ML OF 1 MG/0.1 ML CONCENTRATION

REACTIONS (9)
  - Retinal vasculitis [Recovered/Resolved]
  - Drug hypersensitivity [Recovered/Resolved]
  - Metamorphopsia [Recovered/Resolved]
  - Corneal oedema [Recovered/Resolved]
  - Vision blurred [Recovered/Resolved]
  - Haemorrhagic vasculitis [Recovered/Resolved]
  - Vitreous floaters [Recovered/Resolved]
  - Retinal ischaemia [Unknown]
  - Retinal haemorrhage [Recovered/Resolved]
